FAERS Safety Report 9661357 (Version 2)
Quarter: 2013Q4

REPORT INFORMATION
  Report Type: Spontaneous
  Country: US (occurrence: None)
  Receive Date: 20131030
  Receipt Date: 20131122
  Transmission Date: 20140711
  Serious: Yes (Hospitalization, Other)
  Sender: FDA-Public Use
  Company Number: VAL_02777_2013

PATIENT
  Sex: Female

DRUGS (2)
  1. METOPROLOL [Suspect]
     Indication: HYPERTENSION
     Route: 048
  2. EXFORGE [Suspect]
     Indication: HYPERTENSION
     Dosage: (1 DF QD, VALS 160MG, AMLO 10 MG) ORAL)
     Route: 048

REACTIONS (4)
  - Product quality issue [None]
  - Agitation [None]
  - Blood pressure increased [None]
  - Agitation [None]
